FAERS Safety Report 6234674-X (Version None)
Quarter: 2009Q2

REPORT INFORMATION
  Report Type: 
  Country: None (occurrence: None)
  Receive Date: 20090618
  Receipt Date: 20090127
  Transmission Date: 20091009
  Serious: No
  Sender: FDA-Public Use
  Company Number: US-BAYER-200910910BCC

PATIENT
  Age: 3 Year
  Sex: Female

DRUGS (2)
  1. ALEVE [Suspect]
     Indication: ACCIDENTAL DRUG INTAKE BY CHILD
     Dosage: 6 OR 7 TABLETS AT ONCE
     Route: 048
  2. BENADRYL [Concomitant]
     Indication: SLEEP DISORDER
     Route: 065

REACTIONS (1)
  - NO ADVERSE EVENT [None]
